FAERS Safety Report 18964061 (Version 1)
Quarter: 2021Q1

REPORT INFORMATION
  Report Type: Spontaneous
  Country: US (occurrence: US)
  Receive Date: 20210303
  Receipt Date: 20210303
  Transmission Date: 20210420
  Serious: No
  Sender: FDA-Public Use
  Company Number: US-AMNEAL PHARMACEUTICALS-2020-AMRX-01994

PATIENT
  Sex: Male

DRUGS (3)
  1. RYTARY [Suspect]
     Active Substance: CARBIDOPA\LEVODOPA
     Indication: PARKINSON^S DISEASE
     Dosage: 36.25/145 MG, 3 CAPSULES, TID
     Route: 048
  2. RYTARY [Suspect]
     Active Substance: CARBIDOPA\LEVODOPA
     Dosage: 36.25/145 MG, EXTRA CAPSULE AT LUNCH TIME AFTER RAN OUT OF 23.75/95MG CAPSULE
     Route: 048
  3. RYTARY [Suspect]
     Active Substance: CARBIDOPA\LEVODOPA
     Dosage: 23.75/95 MG, 1 CAPSULES, DAILY, AT LUNCH TIME
     Route: 048

REACTIONS (6)
  - Irritability [Unknown]
  - Fatigue [Unknown]
  - Therapy cessation [Unknown]
  - Balance disorder [Unknown]
  - Tremor [Unknown]
  - Feeling abnormal [Unknown]
